FAERS Safety Report 18200504 (Version 2)
Quarter: 2022Q1

REPORT INFORMATION
  Report Type: Spontaneous
  Country: CA (occurrence: CA)
  Receive Date: 20200826
  Receipt Date: 20220323
  Transmission Date: 20220423
  Serious: Yes (Hospitalization, Other)
  Sender: FDA-Public Use
  Company Number: CA-NAPPMUNDI-CAN-2020-0011399

PATIENT
  Age: 28 Year
  Sex: Female
  Weight: 83 kg

DRUGS (9)
  1. HYDROMORPHONE HYDROCHLORIDE [Suspect]
     Active Substance: HYDROMORPHONE HYDROCHLORIDE
     Indication: Abdominal pain
     Dosage: 1 MG, PRN (AS REQUIRED)
     Route: 048
  2. HYDROMORPHONE HYDROCHLORIDE [Suspect]
     Active Substance: HYDROMORPHONE HYDROCHLORIDE
     Dosage: 1 MG, UNK
     Route: 048
  3. PREDNISONE [Suspect]
     Active Substance: PREDNISONE
     Indication: Product used for unknown indication
     Dosage: UNK
     Route: 048
  4. HUMIRA [Suspect]
     Active Substance: ADALIMUMAB
     Indication: Crohn^s disease
     Dosage: 40 MG, UNK
     Route: 058
  5. ENTOCORT [Suspect]
     Active Substance: BUDESONIDE
     Indication: Product used for unknown indication
     Dosage: 3 MG, UNK
     Route: 048
  6. ENTOCORT [Suspect]
     Active Substance: BUDESONIDE
     Dosage: 9 MG, UNK
     Route: 048
  7. ENTOCORT [Suspect]
     Active Substance: BUDESONIDE
     Dosage: 9 MG, UNK
     Route: 048
  8. ENTOCORT [Suspect]
     Active Substance: BUDESONIDE
     Dosage: 3 MG, UNK
     Route: 065
  9. AZATHIOPRINE [Concomitant]
     Active Substance: AZATHIOPRINE
     Indication: Product used for unknown indication
     Dosage: UNK
     Route: 065

REACTIONS (13)
  - Ileal stenosis [Unknown]
  - Abdominal distension [Unknown]
  - Abdominal pain [Unknown]
  - Abdominal tenderness [Unknown]
  - Appendicectomy [Unknown]
  - Crohn^s disease [Unknown]
  - Diarrhoea [Unknown]
  - Gastrointestinal inflammation [Unknown]
  - Headache [Unknown]
  - Large intestinal stenosis [Unknown]
  - Small intestinal obstruction [Unknown]
  - Small intestinal stenosis [Unknown]
  - Vomiting [Unknown]
